FAERS Safety Report 6216320-4 (Version None)
Quarter: 2009Q2

REPORT INFORMATION
  Report Type: 
  Country: None (occurrence: None)
  Receive Date: 20090603
  Receipt Date: 20090603
  Transmission Date: 20091009
  Serious: Yes (Hospitalization, Other)
  Sender: FDA-Public Use
  Company Number: None

PATIENT
  Sex: Male
  Weight: 91.2 kg

DRUGS (2)
  1. ZOLEDRONIC ACID [Suspect]
     Indication: PROSTATE CANCER
     Dosage: IV EVERY 6 MONTHS FOR A TOTAL OF 3 YEARS
     Route: 042
     Dates: start: 20090202, end: 20090202
  2. LUPRON [Concomitant]

REACTIONS (4)
  - CAROTID ARTERY OCCLUSION [None]
  - HYPOAESTHESIA [None]
  - INJURY [None]
  - MUSCULAR WEAKNESS [None]
